FAERS Safety Report 9162908 (Version 1)
Quarter: 2013Q1

REPORT INFORMATION
  Report Type: Spontaneous
  Country: IT (occurrence: IT)
  Receive Date: 20130314
  Receipt Date: 20130314
  Transmission Date: 20140127
  Serious: Yes (Death, Life-Threatening)
  Sender: FDA-Public Use
  Company Number: IT-TEVA-390621ISR

PATIENT
  Age: 90 Year
  Sex: Male

DRUGS (1)
  1. ATORVASTATIN [Suspect]
     Indication: MYOCARDIAL ISCHAEMIA
     Dosage: 40 MILLIGRAM DAILY;
     Route: 048
     Dates: start: 20111220, end: 20130206

REACTIONS (4)
  - Rhabdomyolysis [Fatal]
  - Asthenia [Fatal]
  - Muscular weakness [Fatal]
  - Hypertonia [Fatal]
